FAERS Safety Report 13458081 (Version 1)
Quarter: 2017Q2

REPORT INFORMATION
  Report Type: Report from Study
  Country: US (occurrence: US)
  Receive Date: 20170419
  Receipt Date: 20170419
  Transmission Date: 20170830
  Serious: Yes (Hospitalization, Other)
  Sender: FDA-Public Use
  Company Number: US-EMD SERONO-E2B_80062993

PATIENT
  Age: 61 Year
  Sex: Female

DRUGS (1)
  1. REBIF [Suspect]
     Active Substance: INTERFERON BETA-1A
     Indication: MULTIPLE SCLEROSIS
     Route: 058
     Dates: start: 20060303, end: 201703

REACTIONS (5)
  - Femur fracture [Recovering/Resolving]
  - Fall [Recovering/Resolving]
  - Tremor [Unknown]
  - Urinary tract infection [Unknown]
  - Drug ineffective [Unknown]

NARRATIVE: CASE EVENT DATE: 20170101
